FAERS Safety Report 7246485-7 (Version None)
Quarter: 2011Q1

REPORT INFORMATION
  Report Type: 
  Country: None (occurrence: None)
  Receive Date: 20110126
  Receipt Date: 20110114
  Transmission Date: 20110831
  Serious: Yes (Hospitalization)
  Sender: FDA-Public Use
  Company Number: FR-GENENTECH-312469

PATIENT
  Sex: Female

DRUGS (4)
  1. MABTHERA [Suspect]
     Dosage: UNK
     Route: 042
     Dates: start: 20090728
  2. MABTHERA [Suspect]
     Dosage: UNK
     Route: 042
     Dates: start: 20090831
  3. MABTHERA [Suspect]
     Dosage: 1 G, UNK
     Route: 042
     Dates: start: 20101203, end: 20101203
  4. MABTHERA [Suspect]
     Indication: IDIOPATHIC THROMBOCYTOPENIC PURPURA
     Dosage: UNK
     Route: 042
     Dates: start: 20090720

REACTIONS (1)
  - HYPERTHERMIA [None]
